FAERS Safety Report 25732981 (Version 1)
Quarter: 2025Q3

REPORT INFORMATION
  Report Type: Spontaneous
  Country: TW (occurrence: TW)
  Receive Date: 20250828
  Receipt Date: 20250828
  Transmission Date: 20251020
  Serious: Yes (Hospitalization)
  Sender: ROCHE
  Company Number: TW-ROCHE-10000367959

PATIENT
  Age: 62 Year
  Sex: Female

DRUGS (3)
  1. AVASTIN [Suspect]
     Active Substance: BEVACIZUMAB
     Indication: Ovarian cancer
     Dosage: 5 COURSES OF TARGETED THERAPY
     Route: 042
     Dates: start: 202310
  2. GEMCITABINE [Concomitant]
     Active Substance: GEMCITABINE
     Indication: Ovarian cancer
     Dosage: 6 COURSES OF PALLIATIVE CHEMOTHERAPY 1000 MG (600 MG/M2)
     Dates: start: 202310
  3. DOXORUBICIN [Concomitant]
     Active Substance: DOXORUBICIN
     Indication: Ovarian cancer

REACTIONS (2)
  - Interstitial lung disease [Recovered/Resolved]
  - Acute respiratory failure [Recovered/Resolved]
